FAERS Safety Report 9674811 (Version 1)
Quarter: 2013Q4

REPORT INFORMATION
  Report Type: Spontaneous
  Country: DE (occurrence: DE)
  Receive Date: 20131107
  Receipt Date: 20131107
  Transmission Date: 20140711
  Serious: Yes (Death, Other)
  Sender: FDA-Public Use
  Company Number: DE-UCBSA-102170

PATIENT
  Sex: 0

DRUGS (1)
  1. PARACETAMOL [Suspect]
     Dosage: UNKNOWN DOSE

REACTIONS (2)
  - Death [Fatal]
  - Skin toxicity [Unknown]
